FAERS Safety Report 9803020 (Version 4)
Quarter: 2015Q1

REPORT INFORMATION
  Report Type: Report from Study
  Country: TH (occurrence: TH)
  Receive Date: 20140108
  Receipt Date: 20150120
  Transmission Date: 20150721
  Serious: Yes (Death, Life-Threatening, Hospitalization)
  Sender: FDA-Public Use
  Company Number: TH-ROCHE-1032992

PATIENT
  Age: 73 Year
  Sex: Male
  Weight: 54 kg

DRUGS (18)
  1. PARACETAMOL [Concomitant]
     Active Substance: ACETAMINOPHEN
     Route: 065
     Dates: start: 20120126, end: 20120130
  2. PARACETAMOL [Concomitant]
     Active Substance: ACETAMINOPHEN
     Route: 065
     Dates: start: 20120123, end: 20120123
  3. LOSEC [Concomitant]
     Active Substance: OMEPRAZOLE
     Route: 065
     Dates: start: 20120129, end: 20120130
  4. CYCLOPHOSPHAMIDE. [Suspect]
     Active Substance: CYCLOPHOSPHAMIDE
     Indication: DIFFUSE LARGE B-CELL LYMPHOMA
     Dosage: DATE OF LAST DOSE PRIOR TO SAE : 16/JAN/2012, LAST DOSE: 1170.5 MG
     Route: 042
     Dates: start: 20120116
  5. VINCRISTINE [Suspect]
     Active Substance: VINCRISTINE
     Indication: DIFFUSE LARGE B-CELL LYMPHOMA
     Dosage: DATE OF LAST DOSE PRIOR TO SAE : 16/JAN/2012, LAST DOSE: 2 MG
     Route: 040
     Dates: start: 20120116
  6. VITAMIN B COMPLEX [Concomitant]
     Active Substance: CYANOCOBALAMIN\DEXPANTHENOL\NIACINAMIDE\PYRIDOXINE HYDROCHLORIDE\RIBOFLAVIN 5^-PHOSPHATE SODIUM\THIAMINE HYDROCHLORIDE\VITAMIN B COMPLEX
     Route: 065
     Dates: start: 20120116, end: 20120129
  7. PIRITON [Concomitant]
     Active Substance: CHLORPHENIRAMINE MALEATE
     Indication: PREMEDICATION
     Route: 065
     Dates: start: 20120116, end: 20120116
  8. OBINUTUZUMAB [Suspect]
     Active Substance: OBINUTUZUMAB
     Indication: DIFFUSE LARGE B-CELL LYMPHOMA
     Dosage: DATE OF MOST RECENT DOSE PRIOR TO AE ONSET : 16/JAN/2012, DOSE: 4 MG/ML, LAST DOSE VOLUME: 250 ML
     Route: 042
     Dates: start: 20120116
  9. LACTULOSE. [Concomitant]
     Active Substance: LACTULOSE
     Route: 065
     Dates: start: 20120124, end: 20120125
  10. DEXAMETHASONE. [Concomitant]
     Active Substance: DEXAMETHASONE
     Indication: PREMEDICATION
     Route: 065
     Dates: start: 20120116, end: 20120116
  11. PARACETAMOL [Concomitant]
     Active Substance: ACETAMINOPHEN
     Indication: PREMEDICATION
     Route: 065
     Dates: start: 20120116, end: 20120116
  12. ONSIA [Concomitant]
     Indication: VOMITING
     Route: 065
     Dates: start: 20120116, end: 20120116
  13. SENOKOT [Concomitant]
     Active Substance: SENNOSIDES
     Indication: CONSTIPATION
     Route: 065
     Dates: start: 20120116, end: 20120127
  14. NEUPOGEN [Concomitant]
     Active Substance: FILGRASTIM
     Route: 065
     Dates: start: 20120124, end: 20120129
  15. DOXORUBICIN [Suspect]
     Active Substance: DOXORUBICIN
     Indication: DIFFUSE LARGE B-CELL LYMPHOMA
     Dosage: DATE OF LAST DOSE PRIOR TO SAE : 16/JAN/2012, LAST DOSE: 78.5 MG
     Route: 042
     Dates: start: 20120116
  16. ONSIA [Concomitant]
     Route: 065
     Dates: start: 20120116, end: 20120127
  17. PLASIL [Concomitant]
     Active Substance: METOCLOPRAMIDE HYDROCHLORIDE
     Route: 065
     Dates: start: 20120125, end: 20120125
  18. PREDNISONE. [Suspect]
     Active Substance: PREDNISONE
     Indication: DIFFUSE LARGE B-CELL LYMPHOMA
     Dosage: DATE OF LAST DOSE PRIOR TO SAE : 20/JAN/2012, LAST DOSE: 100 MG
     Route: 048
     Dates: start: 20120116

REACTIONS (3)
  - Thrombocytopenia [Not Recovered/Not Resolved]
  - Pneumonia [Fatal]
  - Neutropenia [Not Recovered/Not Resolved]

NARRATIVE: CASE EVENT DATE: 20120123
